FAERS Safety Report 9637578 (Version 2)
Quarter: 2013Q4

REPORT INFORMATION
  Report Type: Report from Study
  Country: JP (occurrence: JP)
  Receive Date: 20131022
  Receipt Date: 20131025
  Transmission Date: 20140711
  Serious: Yes (Other)
  Sender: FDA-Public Use
  Company Number: JP-UCBSA-100239

PATIENT
  Age: 81 Year
  Sex: Male

DRUGS (7)
  1. E KEPPRA [Suspect]
     Indication: COMPLEX PARTIAL SEIZURES
     Route: 048
     Dates: start: 20130618, end: 20130625
  2. RIVASTACH [Suspect]
     Dosage: 4.5 MG
     Dates: end: 20130625
  3. TEGRETOL [Suspect]
     Indication: COMPLEX PARTIAL SEIZURES
     Dosage: DAILY DOSE: 400 MG
     Route: 048
     Dates: start: 20130618, end: 20130625
  4. MUCOSOLVAN [Suspect]
     Dosage: DAILY DOSE: 45 MG
     Route: 048
     Dates: end: 20130625
  5. SULPIRIDE [Suspect]
     Dosage: DAILY DOSE: 150 MG
     Route: 048
     Dates: end: 20130625
  6. UBRETIDE [Concomitant]
     Dosage: DAILY DOSE: 5 MG
     Route: 048
     Dates: end: 20130625
  7. TAMSULOSIN HYDROCHLORIDE [Concomitant]
     Dosage: DAILY DOSE: 0.2 MG
     Route: 048
     Dates: end: 20130625

REACTIONS (1)
  - Platelet count decreased [Recovered/Resolved]
